FAERS Safety Report 24680292 (Version 2)
Quarter: 2024Q4

REPORT INFORMATION
  Report Type: Spontaneous
  Country: IE (occurrence: IE)
  Receive Date: 20241129
  Receipt Date: 20241213
  Transmission Date: 20250114
  Serious: Yes (Other)
  Sender: SANDOZ
  Company Number: IE-SANDOZ-SDZ2023IE013864

PATIENT
  Age: 67 Year
  Sex: Female

DRUGS (8)
  1. AMOXICILLIN [Suspect]
     Active Substance: AMOXICILLIN
     Indication: Hypersensitivity
     Dosage: UNK
     Route: 065
     Dates: start: 2016
  2. BUPIVACAINE [Suspect]
     Active Substance: BUPIVACAINE
     Indication: Pain management
     Dosage: STEROID INJECTIONS THE SHOULDER AND BACKUNK
     Route: 065
     Dates: start: 201904
  3. BUPIVACAINE [Suspect]
     Active Substance: BUPIVACAINE
     Indication: Arthralgia
  4. BUPIVACAINE [Suspect]
     Active Substance: BUPIVACAINE
     Indication: Back pain
  5. DEXAMETHASONE [Suspect]
     Active Substance: DEXAMETHASONE
     Indication: Product used for unknown indication
     Dosage: UNK
     Route: 065
     Dates: start: 201908
  6. PREDNISOLONE [Suspect]
     Active Substance: PREDNISOLONE
     Indication: Hypersensitivity
     Dosage: 5 MG, QD
     Route: 065
     Dates: start: 2016
  7. TRIAMCINOLONE [Suspect]
     Active Substance: TRIAMCINOLONE
     Indication: Arthralgia
     Dosage: ASKU
     Route: 065
     Dates: end: 2019
  8. TRIAMCINOLONE [Suspect]
     Active Substance: TRIAMCINOLONE
     Indication: Back pain
     Dosage: STEROID INJECTIONS THE SHOULDER AND BACKUNK
     Route: 065
     Dates: start: 201904

REACTIONS (2)
  - Rash erythematous [Recovered/Resolved]
  - Off label use [Unknown]

NARRATIVE: CASE EVENT DATE: 20190401
